FAERS Safety Report 4481417-6 (Version None)
Quarter: 2004Q3

REPORT INFORMATION
  Report Type: 
  Country: None (occurrence: None)
  Receive Date: 20040923
  Receipt Date: 20040722
  Transmission Date: 20050211
  Serious: No
  Sender: FDA-Public Use
  Company Number: USA040773453

PATIENT
  Age: 84 Year
  Sex: Female

DRUGS (8)
  1. FORTEO [Suspect]
     Indication: OSTEOPOROSIS
     Dates: start: 20040301
  2. HYDREA [Concomitant]
  3. TOPROL-XL [Concomitant]
  4. LEVOXYL [Concomitant]
  5. POTASSIUM CHLORIDE [Concomitant]
  6. FUROSEMIDE [Concomitant]
  7. ALPRAX (ALPRAZOLAM DUM [Concomitant]
  8. PLENDIL [Concomitant]

REACTIONS (3)
  - BLOOD DISORDER [None]
  - FATIGUE [None]
  - WHOLE BLOOD TRANSFUSION [None]
